FAERS Safety Report 4723575-1 (Version None)
Quarter: 2005Q3

REPORT INFORMATION
  Report Type: 
  Country: None (occurrence: None)
  Receive Date: 20050720
  Receipt Date: 20050720
  Transmission Date: 20060218
  Serious: Yes (Hospitalization)
  Sender: FDA-Public Use
  Company Number: None

PATIENT
  Age: 69 Year
  Sex: Female
  Weight: 78.9 kg

DRUGS (1)
  1. ETODOLAC [Suspect]
     Indication: ADVERSE DRUG REACTION
     Dosage: ?400 MG BID

REACTIONS (8)
  - CHILLS [None]
  - DERMATITIS EXFOLIATIVE [None]
  - PYREXIA [None]
  - RASH GENERALISED [None]
  - RASH MACULO-PAPULAR [None]
  - RASH PRURITIC [None]
  - URINARY TRACT INFECTION [None]
  - WHITE BLOOD CELL COUNT INCREASED [None]
